FAERS Safety Report 6969139-0 (Version None)
Quarter: 2010Q3

REPORT INFORMATION
  Report Type: 
  Country: None (occurrence: None)
  Receive Date: 20100907
  Receipt Date: 20100623
  Transmission Date: 20110219
  Serious: Yes (Other)
  Sender: FDA-Public Use
  Company Number: US-TYCO HEALTHCARE/MALLINCKRODT-T201001516

PATIENT
  Sex: Female

DRUGS (8)
  1. EXALGO [Suspect]
     Indication: PAIN
     Dosage: 12 MG, QD
     Route: 048
     Dates: start: 20100622, end: 20100622
  2. MELOXICAM [Concomitant]
     Indication: ARTHRITIS
     Dosage: 1 TAB PRN
     Route: 048
  3. PRAVASTATIN [Concomitant]
     Indication: BLOOD CHOLESTEROL
     Dosage: 40 MG, QD AT BEDTIME
     Route: 048
  4. NEURONTIN [Concomitant]
     Dosage: UNK
  5. PRILOSEC [Concomitant]
     Indication: GASTROOESOPHAGEAL REFLUX DISEASE
     Dosage: UNK
  6. NITROGLYCERIN [Concomitant]
     Indication: ANGINA PECTORIS
     Dosage: PRN
  7. ANTIDEPRESSANTS [Concomitant]
     Dosage: UNK
  8. ALBUTEROL [Concomitant]
     Indication: CHRONIC OBSTRUCTIVE PULMONARY DISEASE
     Dosage: PRN

REACTIONS (3)
  - DYSPNOEA [None]
  - HALLUCINATION [None]
  - PARANOIA [None]
